FAERS Safety Report 25654864 (Version 1)
Quarter: 2025Q3

REPORT INFORMATION
  Report Type: Spontaneous
  Country: EU (occurrence: EU)
  Receive Date: 20250807
  Receipt Date: 20250807
  Transmission Date: 20251021
  Serious: Yes (Hospitalization)
  Sender: RANBAXY
  Company Number: EU-AFSSAPS-PO2025000449

PATIENT
  Age: 52 Year
  Sex: Male
  Weight: 84 kg

DRUGS (5)
  1. BISOPROLOL [Suspect]
     Active Substance: BISOPROLOL
     Indication: Infarction
     Dosage: 5 MILLIGRAM, DAILY
     Route: 048
     Dates: start: 20250115, end: 20250125
  2. RAMIPRIL [Suspect]
     Active Substance: RAMIPRIL
     Indication: Infarction
     Dosage: 2.5 MILLIGRAM, DAILY
     Route: 048
     Dates: start: 20250115, end: 20250125
  3. ATORVASTATIN [Suspect]
     Active Substance: ATORVASTATIN
     Indication: Infarction
     Dosage: 80 MILLIGRAM, DAILY
     Route: 048
     Dates: start: 20250115, end: 20250125
  4. LANSOPRAZOLE [Suspect]
     Active Substance: LANSOPRAZOLE
     Indication: Infarction
     Dosage: 15 MILLIGRAM, DAILY
     Route: 048
     Dates: start: 20250115, end: 20250125
  5. OMNIPAQUE [Suspect]
     Active Substance: IOHEXOL
     Indication: Scan with contrast
     Route: 040
     Dates: start: 20250114, end: 20250117

REACTIONS (1)
  - Rash maculo-papular [Recovered/Resolved]

NARRATIVE: CASE EVENT DATE: 20250124
